FAERS Safety Report 14558105 (Version 2)
Quarter: 2018Q3

REPORT INFORMATION
  Report Type: Report from Study
  Country: US (occurrence: US)
  Receive Date: 20180221
  Receipt Date: 20180702
  Transmission Date: 20181010
  Serious: Yes (Other)
  Sender: FDA-Public Use
  Company Number: PHEH2018US005480

PATIENT
  Sex: Female

DRUGS (2)
  1. ENTRESTO [Suspect]
     Active Substance: SACUBITRIL\VALSARTAN
     Indication: MYOCARDIAL INFARCTION
     Route: 048
  2. ENTRESTO [Suspect]
     Active Substance: SACUBITRIL\VALSARTAN
     Indication: FLUID RETENTION

REACTIONS (9)
  - Myocardial infarction [Unknown]
  - Weight increased [Unknown]
  - Dyspnoea [Unknown]
  - Memory impairment [Unknown]
  - Product use in unapproved indication [Unknown]
  - Swelling [Unknown]
  - Cough [Unknown]
  - Urinary tract infection [Unknown]
  - Fatigue [Unknown]
